FAERS Safety Report 20999792 (Version 1)
Quarter: 2022Q2

REPORT INFORMATION
  Report Type: Spontaneous
  Country: US (occurrence: US)
  Receive Date: 20220623
  Receipt Date: 20220623
  Transmission Date: 20220721
  Serious: Yes (Hospitalization)
  Sender: FDA-Public Use
  Company Number: US-PARI RESPIRATORY EQUIPMENT, INC.-2022PAR00037

PATIENT
  Sex: Female

DRUGS (1)
  1. KITABIS PAK [Suspect]
     Active Substance: TOBRAMYCIN
     Indication: Mycobacterial infection
     Dosage: 300 MG, 2X/DAY
     Dates: start: 20220517

REACTIONS (3)
  - Hospitalisation [Unknown]
  - Off label use [Not Recovered/Not Resolved]
  - Unevaluable event [Unknown]

NARRATIVE: CASE EVENT DATE: 20220101
